FAERS Safety Report 19451142 (Version 1)
Quarter: 2021Q2

REPORT INFORMATION
  Report Type: Spontaneous
  Country: US (occurrence: US)
  Receive Date: 20210622
  Receipt Date: 20210622
  Transmission Date: 20210717
  Serious: Yes (Hospitalization)
  Sender: FDA-Public Use
  Company Number: None

PATIENT
  Age: 81 Year
  Sex: Female
  Weight: 75 kg

DRUGS (2)
  1. WARFARIN [Suspect]
     Active Substance: WARFARIN
     Indication: ATRIAL FIBRILLATION
     Dates: start: 20100916
  2. PREDNISONE. [Concomitant]
     Active Substance: PREDNISONE
     Dates: start: 20100915

REACTIONS (8)
  - Haematochezia [None]
  - Occult blood positive [None]
  - Blood pressure decreased [None]
  - Abdominal pain lower [None]
  - Gastrointestinal haemorrhage [None]
  - Diverticulum intestinal haemorrhagic [None]
  - Haemoglobin decreased [None]
  - Heart rate increased [None]

NARRATIVE: CASE EVENT DATE: 20210531
